FAERS Safety Report 7208931-4 (Version None)
Quarter: 2011Q1

REPORT INFORMATION
  Report Type: 
  Country: None (occurrence: None)
  Receive Date: 20110104
  Receipt Date: 20101221
  Transmission Date: 20110831
  Serious: Yes (Other)
  Sender: FDA-Public Use
  Company Number: PHHY2010US87739

PATIENT
  Sex: Male

DRUGS (3)
  1. ASCORBIC ACID [Concomitant]
  2. VITAMIN D [Concomitant]
  3. GLEEVEC [Suspect]
     Indication: CHRONIC MYELOID LEUKAEMIA
     Dosage: 400 MG, QD
     Route: 048
     Dates: end: 20101221

REACTIONS (3)
  - ABNORMAL SENSATION IN EYE [None]
  - EXOPHTHALMOS [None]
  - EYE HAEMORRHAGE [None]
